FAERS Safety Report 6053241-4 (Version None)
Quarter: 2009Q1

REPORT INFORMATION
  Report Type: 
  Country: None (occurrence: None)
  Receive Date: 20090127
  Receipt Date: 20090120
  Transmission Date: 20090719
  Serious: Yes (Congenital Anomaly, Other)
  Sender: FDA-Public Use
  Company Number: AU-AVENTIS-200910722GDDC

PATIENT
  Age: 31 Year
  Sex: Female

DRUGS (3)
  1. ARAVA [Suspect]
     Dosage: DOSE: UNK
     Dates: end: 20080101
  2. PREDNISONE [Suspect]
     Dosage: DOSE: UNK
  3. ENBREL [Suspect]
     Dosage: DOSE: UNK

REACTIONS (3)
  - ABORTION INDUCED [None]
  - CONGENITAL ANOMALY [None]
  - DRUG EXPOSURE DURING PREGNANCY [None]
